FAERS Safety Report 6903621-7 (Version None)
Quarter: 2010Q3

REPORT INFORMATION
  Report Type: 
  Country: None (occurrence: None)
  Receive Date: 20100803
  Receipt Date: 20081031
  Transmission Date: 20110219
  Serious: No
  Sender: FDA-Public Use
  Company Number: US-PFIZER INC-2008092227

PATIENT
  Sex: Female
  Weight: 51.71 kg

DRUGS (5)
  1. LYRICA [Suspect]
     Indication: DEPRESSION
     Route: 048
     Dates: start: 20081001
  2. LYRICA [Suspect]
     Indication: FIBROMYALGIA
  3. PREDNISONE [Concomitant]
  4. POTASSIUM [Concomitant]
  5. PANADEINE CO [Concomitant]

REACTIONS (7)
  - ABNORMAL BEHAVIOUR [None]
  - FEELING ABNORMAL [None]
  - FEELING DRUNK [None]
  - HYPOAESTHESIA [None]
  - INSOMNIA [None]
  - SOMNOLENCE [None]
  - STARING [None]
